FAERS Safety Report 20748836 (Version 2)
Quarter: 2022Q3

REPORT INFORMATION
  Report Type: Spontaneous
  Country: GB (occurrence: GB)
  Receive Date: 20220426
  Receipt Date: 20220706
  Transmission Date: 20221026
  Serious: Yes (Other)
  Sender: FDA-Public Use
  Company Number: GB-CELLTRION INC.-2022GB004181

PATIENT

DRUGS (1)
  1. INFLIXIMAB [Suspect]
     Active Substance: INFLIXIMAB
     Indication: Colitis ulcerative
     Dosage: 120 MILLIGRAM, FORTNIGHTLY/EOW
     Route: 058
     Dates: start: 20210414

REACTIONS (3)
  - Colitis ulcerative [Unknown]
  - Neoplasm malignant [Not Recovered/Not Resolved]
  - Product dose omission issue [Unknown]
